FAERS Safety Report 19626294 (Version 1)
Quarter: 2021Q3

REPORT INFORMATION
  Report Type: Spontaneous
  Country: US (occurrence: US)
  Receive Date: 20210728
  Receipt Date: 20210728
  Transmission Date: 20211014
  Serious: Yes (Death)
  Sender: FDA-Public Use
  Company Number: None

PATIENT
  Age: 69 Year
  Sex: Female
  Weight: 81.9 kg

DRUGS (21)
  1. KRILL OIL OMEGA 3 [Concomitant]
  2. PROBIOTIC [Concomitant]
     Active Substance: PROBIOTICS NOS
  3. MAGNESIUM [Concomitant]
     Active Substance: MAGNESIUM
  4. OXYBUTYNIN ER 15MG [Concomitant]
  5. VENTOLIN HFA [Concomitant]
     Active Substance: ALBUTEROL SULFATE
  6. PRISTIQ 25MG [Concomitant]
  7. POTASSIUM ER 10MEQ [Concomitant]
  8. VITAMIN D 2000IU [Concomitant]
  9. FUROSEMIDE 20MG [Concomitant]
     Active Substance: FUROSEMIDE
  10. FOLIC ACID 1MG [Concomitant]
     Active Substance: FOLIC ACID
  11. DILTIAZEM ER 120MG [Concomitant]
     Active Substance: DILTIAZEM
  12. OMEPRAZOLE 20MG [Concomitant]
     Active Substance: OMEPRAZOLE
  13. FLOVENT HFA 220MCG/ACT [Concomitant]
  14. VENTOLIN HFA [Concomitant]
     Active Substance: ALBUTEROL SULFATE
  15. XARELTO [Concomitant]
     Active Substance: RIVAROXABAN
  16. CARTIA XT 120MG [Concomitant]
  17. LORBRENA [Suspect]
     Active Substance: LORLATINIB
     Indication: LUNG NEOPLASM MALIGNANT
     Route: 048
     Dates: start: 20201216, end: 20210728
  18. LOVENOX 80MG/0.8ML [Concomitant]
  19. FLUTICASONE 50MCG/ACT [Concomitant]
  20. XGEVA [Concomitant]
     Active Substance: DENOSUMAB
  21. OXYCODONE [Concomitant]
     Active Substance: OXYCODONE

REACTIONS (1)
  - Death [None]

NARRATIVE: CASE EVENT DATE: 20210728
